FAERS Safety Report 9500221 (Version 1)
Quarter: 2013Q1

REPORT INFORMATION
  Report Type: Spontaneous
  Country: US (occurrence: None)
  Receive Date: 20130129
  Receipt Date: 20130129
  Transmission Date: 20140127
  Serious: Yes (Other)
  Sender: FDA-Public Use
  Company Number: 1000038995

PATIENT
  Age: 60 Year
  Sex: Female

DRUGS (7)
  1. BYSTOLIC [Suspect]
     Indication: HYPERTENSION
     Dosage: 10 MG (10 MG, 1 IN 1 D)
     Dates: start: 20120718, end: 20120924
  2. TRIBENZOR TRIBENZOR TRIBENZOR [Concomitant]
  3. LIPITOR  ATORVASTATIN CALCIUM  ATORVASTATIN CALCIUM [Concomitant]
  4. SYNTHROID LEVOTHYROXINE SODIUM LEVOTHYROXINE SODIUM [Concomitant]
  5. ALLEGRA FEXOFENADINE HYDROCHLORIDE FEXOFENADINE HYDROCHLORIDE [Concomitant]
  6. LANSOPRAZOLE LANSOPRAZOLE LANSOPRAZOLE [Concomitant]
  7. LANTUS INSULIN GLARGINE INSULIN GLARGINE [Concomitant]

REACTIONS (2)
  - Bradycardia [None]
  - Dizziness [None]
